FAERS Safety Report 5663326-X (Version None)
Quarter: 2008Q1

REPORT INFORMATION
  Report Type: 
  Country: None (occurrence: None)
  Receive Date: 20080307
  Receipt Date: 20080221
  Transmission Date: 20080703
  Serious: Yes (Other)
  Sender: FDA-Public Use
  Company Number: 2008018205

PATIENT
  Sex: Female

DRUGS (1)
  1. FRAGMIN [Suspect]

REACTIONS (1)
  - ASTHMA [None]
